FAERS Safety Report 7872317-X (Version None)
Quarter: 2011Q4

REPORT INFORMATION
  Report Type: 
  Country: None (occurrence: None)
  Receive Date: 20111030
  Receipt Date: 20110317
  Transmission Date: 20120403
  Serious: No
  Sender: FDA-Public Use
  Company Number: US-AMGEN-USASP2011014791

PATIENT
  Sex: Male

DRUGS (1)
  1. ENBREL [Suspect]
     Indication: PSORIASIS
     Dates: start: 20080301, end: 20100101

REACTIONS (9)
  - NASOPHARYNGITIS [None]
  - SINUS CONGESTION [None]
  - HEADACHE [None]
  - PYREXIA [None]
  - PSORIASIS [None]
  - DRUG EFFECT DECREASED [None]
  - COUGH [None]
  - PAIN IN EXTREMITY [None]
  - INJECTION SITE PAIN [None]
